FAERS Safety Report 9630476 (Version 2)
Quarter: 2013Q4

REPORT INFORMATION
  Report Type: Spontaneous
  Country: US (occurrence: US)
  Receive Date: 20131018
  Receipt Date: 20131023
  Transmission Date: 20140711
  Serious: No
  Sender: FDA-Public Use
  Company Number: US-009507513-1310USA003533

PATIENT
  Age: 56 Year
  Sex: Male

DRUGS (3)
  1. PEGINTRON [Suspect]
     Indication: HEPATITIS C
     Dosage: REDIPEN,150 MCG, INJECT 150 MCG WEEKLY
     Route: 058
     Dates: start: 20131006
  2. PEGINTRON [Suspect]
     Dosage: REDIPEN,150 MCG, INJECT 150 MCG WEEKLY
     Route: 058
     Dates: start: 20131006
  3. PEGINTRON [Suspect]
     Dosage: REDIPEN,150 MCG, INJECT 150 MCG WEEKLY
     Route: 058
     Dates: start: 201212

REACTIONS (3)
  - Underdose [Unknown]
  - Product quality issue [Unknown]
  - No adverse event [Unknown]
